FAERS Safety Report 18958509 (Version 1)
Quarter: 2021Q1

REPORT INFORMATION
  Report Type: Other
  Country: DK (occurrence: DK)
  Receive Date: 20210302
  Receipt Date: 20210302
  Transmission Date: 20210420
  Serious: Yes (Life-Threatening, Hospitalization, Other)
  Sender: FDA-Public Use
  Company Number: DK-ASTELLAS-2021US006886

PATIENT
  Age: 79 Year
  Sex: Male

DRUGS (1)
  1. XTANDI [Suspect]
     Active Substance: ENZALUTAMIDE
     Indication: PROSTATE CANCER METASTATIC
     Route: 048
     Dates: start: 20210203, end: 20210203

REACTIONS (8)
  - Thrombotic microangiopathy [Not Recovered/Not Resolved]
  - Oliguria [Unknown]
  - Haemolytic uraemic syndrome [Not Recovered/Not Resolved]
  - Malaise [Unknown]
  - Neoplasm [Not Recovered/Not Resolved]
  - Fatigue [Unknown]
  - Jaundice cholestatic [Unknown]
  - Chromaturia [Unknown]

NARRATIVE: CASE EVENT DATE: 202102
